FAERS Safety Report 6813797-8 (Version None)
Quarter: 2010Q3

REPORT INFORMATION
  Report Type: 
  Country: None (occurrence: None)
  Receive Date: 20100701
  Receipt Date: 20100504
  Transmission Date: 20110219
  Serious: Yes (Other)
  Sender: FDA-Public Use
  Company Number: CN-RANBAXY-2010US-33595

PATIENT

DRUGS (2)
  1. METFORMIN HCL [Suspect]
     Indication: TYPE 2 DIABETES MELLITUS
     Dosage: 1 G, BID
     Route: 065
  2. FAMOTIDINE [Suspect]
     Indication: GASTRITIS
     Dosage: UNK, UNK
     Route: 065

REACTIONS (3)
  - COGNITIVE DISORDER [None]
  - SUBACUTE COMBINED CORD DEGENERATION [None]
  - VITAMIN B COMPLEX DEFICIENCY [None]
